FAERS Safety Report 9422101 (Version 1)
Quarter: 2013Q3

REPORT INFORMATION
  Report Type: Report from Study
  Country: FR (occurrence: FR)
  Receive Date: 20130726
  Receipt Date: 20130726
  Transmission Date: 20140515
  Serious: Yes (Other)
  Sender: FDA-Public Use
  Company Number: FR-ROCHE-1253175

PATIENT
  Age: 74 Year
  Sex: Female

DRUGS (2)
  1. RITUXIMAB [Suspect]
     Indication: VASCULITIS
     Route: 065
  2. PREDNISONE [Concomitant]
     Route: 065

REACTIONS (1)
  - Acute coronary syndrome [Unknown]
